FAERS Safety Report 15723763 (Version 1)
Quarter: 2018Q4

REPORT INFORMATION
  Report Type: Spontaneous
  Country: BE (occurrence: BE)
  Receive Date: 20181214
  Receipt Date: 20181214
  Transmission Date: 20190205
  Serious: Yes (Hospitalization)
  Sender: FDA-Public Use
  Company Number: BE-JNJFOC-20181215528

PATIENT
  Age: 72 Year
  Sex: Female

DRUGS (2)
  1. HEPARIN [Concomitant]
     Active Substance: HEPARIN SODIUM
     Route: 065
  2. XARELTO [Suspect]
     Active Substance: RIVAROXABAN
     Indication: ATRIAL FIBRILLATION
     Route: 048
     Dates: start: 20181127

REACTIONS (2)
  - Anuria [Unknown]
  - Cystitis haemorrhagic [Unknown]

NARRATIVE: CASE EVENT DATE: 20181202
